FAERS Safety Report 6027141-X (Version None)
Quarter: 2008Q4

REPORT INFORMATION
  Report Type: 
  Country: None (occurrence: None)
  Receive Date: 20081231
  Receipt Date: 20081231
  Transmission Date: 20090506
  Serious: Yes (Hospitalization)
  Sender: FDA-Public Use
  Company Number: None

PATIENT
  Sex: Male
  Weight: 52.8 kg

DRUGS (1)
  1. METHOTREXATE [Suspect]
     Indication: ACUTE LYMPHOCYTIC LEUKAEMIA
     Dosage: 15MG X 8 IT
     Route: 037
     Dates: start: 20080813, end: 20081118

REACTIONS (14)
  - APHASIA [None]
  - ARACHNOIDITIS [None]
  - CEREBRAL INFARCTION [None]
  - CONVULSION [None]
  - ENCEPHALOPATHY [None]
  - FACIAL PARESIS [None]
  - HEMIPARESIS [None]
  - HYPOAESTHESIA [None]
  - NAUSEA [None]
  - NEUROTOXICITY [None]
  - PARAESTHESIA [None]
  - PARESIS [None]
  - THERAPEUTIC AGENT TOXICITY [None]
  - VOMITING [None]
